FAERS Safety Report 17227628 (Version 7)
Quarter: 2024Q1

REPORT INFORMATION
  Report Type: Report from Study
  Country: CO (occurrence: CO)
  Receive Date: 20200103
  Receipt Date: 20240226
  Transmission Date: 20240410
  Serious: Yes (Hospitalization, Other)
  Sender: FDA-Public Use
  Company Number: CO-ASTELLAS-2019US049912

PATIENT
  Age: 40 Year
  Sex: Female
  Weight: 50 kg

DRUGS (19)
  1. TACROLIMUS [Interacting]
     Active Substance: TACROLIMUS
     Indication: Renal transplant
     Route: 048
     Dates: start: 20190927, end: 20191212
  2. TACROLIMUS [Interacting]
     Active Substance: TACROLIMUS
     Route: 048
     Dates: start: 20191213
  3. TACROLIMUS [Interacting]
     Active Substance: TACROLIMUS
     Route: 048
  4. TACROLIMUS [Interacting]
     Active Substance: TACROLIMUS
     Route: 048
  5. TACROLIMUS [Suspect]
     Active Substance: TACROLIMUS
     Indication: Renal transplant
     Route: 048
     Dates: start: 20200814
  6. TACROLIMUS [Suspect]
     Active Substance: TACROLIMUS
     Route: 048
  7. TACROLIMUS [Suspect]
     Active Substance: TACROLIMUS
     Route: 048
  8. MYCOPHENOLIC ACID [Suspect]
     Active Substance: MYCOPHENOLIC ACID
     Indication: Product used for unknown indication
     Route: 048
     Dates: start: 20190927
  9. MYCOPHENOLIC ACID [Suspect]
     Active Substance: MYCOPHENOLIC ACID
     Dosage: UNK UNK, UNKNOWN FREQ.
     Route: 048
  10. ETHAMBUTOL HYDROCHLORIDE\ISONIAZID\PYRAZINAMIDE\RIFAMYCIN [Interacting]
     Active Substance: ETHAMBUTOL HYDROCHLORIDE\ISONIAZID\PYRAZINAMIDE\RIFAMYCIN
     Indication: Tuberculosis
     Dosage: UNK UNK, UNKNOWN FREQ.
     Route: 065
     Dates: start: 20200624
  11. PREDNISOLONE [Concomitant]
     Active Substance: PREDNISOLONE
     Indication: Renal transplant
     Route: 048
     Dates: start: 20190927
  12. PREDNISOLONE [Concomitant]
     Active Substance: PREDNISOLONE
     Route: 048
     Dates: start: 201909
  13. ATORVASTATIN [Concomitant]
     Active Substance: ATORVASTATIN
     Indication: Blood cholesterol increased
     Dosage: 20 MG, IN BETWEEN DAYS
     Route: 048
  14. ATORVASTATIN [Concomitant]
     Active Substance: ATORVASTATIN
     Indication: Diabetes prophylaxis
  15. NOVORAPID [Concomitant]
     Active Substance: INSULIN ASPART
     Indication: Type 1 diabetes mellitus
     Dosage: UNK UNK, UNKNOWN FREQ.(9 YEARS AGO)
     Route: 065
     Dates: start: 2011
  16. MYFORTIC [Concomitant]
     Active Substance: MYCOPHENOLATE SODIUM
     Indication: Renal transplant
     Dosage: 360 MG, 2 IN THE MORNING AND 1 IN NIGHT
     Route: 048
     Dates: start: 201909
  17. CALCIUM CARBONATE [Concomitant]
     Active Substance: CALCIUM CARBONATE
     Indication: Mineral supplementation
     Dosage: 600 MG, IN BETWEEN DAYS
     Route: 048
     Dates: start: 201909
  18. CALCITRIOL [Concomitant]
     Active Substance: CALCITRIOL
     Indication: Mineral supplementation
     Dosage: 0.5 ?G, IN BETWEEN DAYS
     Route: 048
     Dates: start: 201909
  19. INSULIN NOS [Concomitant]
     Active Substance: INSULIN NOS
     Indication: Type 1 diabetes mellitus
     Dosage: UNK UNK, UNKNOWN FREQ. (9 YEARS AGO)
     Route: 065
     Dates: start: 2011

REACTIONS (14)
  - Neuropathy peripheral [Recovering/Resolving]
  - Klebsiella infection [Recovering/Resolving]
  - Tuberculosis of genitourinary system [Unknown]
  - Haematological infection [Not Recovered/Not Resolved]
  - Kidney infection [Not Recovered/Not Resolved]
  - Cerebral venous sinus thrombosis [Unknown]
  - Diarrhoea [Recovered/Resolved]
  - Diarrhoea [Recovered/Resolved]
  - Tremor [Recovering/Resolving]
  - Tachycardia [Recovering/Resolving]
  - Infection [Recovered/Resolved]
  - Immunosuppressant drug level decreased [Recovered/Resolved]
  - Klebsiella bacteraemia [Unknown]
  - Drug interaction [Unknown]

NARRATIVE: CASE EVENT DATE: 20191001
